FAERS Safety Report 9728355 (Version 1)
Quarter: 2013Q4

REPORT INFORMATION
  Report Type: Spontaneous
  Country: US (occurrence: None)
  Receive Date: 20131203
  Receipt Date: 20131203
  Transmission Date: 20140711
  Serious: Yes (Hospitalization)
  Sender: FDA-Public Use
  Company Number: None

PATIENT
  Age: 51 None
  Sex: Male

DRUGS (2)
  1. TOBI PODHALER [Suspect]
     Dosage: 4 CAPS Q12 INHALATION
  2. TOBI PODHALER [Suspect]
     Dosage: 4 CAPS Q12 INHALATION

REACTIONS (2)
  - Cough [None]
  - Malaise [None]
